FAERS Safety Report 7834296-0 (Version None)
Quarter: 2011Q4

REPORT INFORMATION
  Report Type: 
  Country: None (occurrence: None)
  Receive Date: 20111024
  Receipt Date: 20111021
  Transmission Date: 20120403
  Serious: Yes (Death, Other)
  Sender: FDA-Public Use
  Company Number: PHHY2011NL89107

PATIENT
  Sex: Female
  Weight: 75 kg

DRUGS (6)
  1. ZOMETA [Suspect]
     Dosage: 4 MG/5ML
     Dates: start: 20110902
  2. FENTANYL [Concomitant]
     Dosage: 32.5 UG, EVERY 3 DAYS
  3. ACETAMINOPHEN W/ CODEINE [Concomitant]
     Dosage: 2 DF, UNK
     Route: 048
  4. ZOMETA [Suspect]
     Indication: RENAL CELL CARCINOMA
     Dosage: 4 MG/5ML
  5. FERROFUMARAT [Concomitant]
     Dosage: 200 MG, QD
  6. DIOVAN [Concomitant]
     Dosage: 80 MG, QD

REACTIONS (5)
  - BLOOD CALCIUM INCREASED [None]
  - MALAISE [None]
  - DEATH [None]
  - TERMINAL STATE [None]
  - GENERAL PHYSICAL HEALTH DETERIORATION [None]
